FAERS Safety Report 8130328-3 (Version None)
Quarter: 2012Q1

REPORT INFORMATION
  Report Type: 
  Country: None (occurrence: None)
  Receive Date: 20120210
  Receipt Date: 20120206
  Transmission Date: 20120608
  Serious: Yes (Life-Threatening)
  Sender: FDA-Public Use
  Company Number: PHHY2012BR008308

PATIENT
  Sex: Male
  Weight: 85 kg

DRUGS (2)
  1. SERTRALINE HYDROCHLORIDE [Concomitant]
     Indication: STRESS
     Dosage: 1 DF, DAILY
     Route: 048
     Dates: end: 20120118
  2. TRILEPTAL [Suspect]
     Indication: EPILEPSY
     Dosage: 900 MG (HALF TABLET IN THE MORNING AND ONE TABLET AT NIGHT)
     Route: 048

REACTIONS (4)
  - HEAD INJURY [None]
  - FEELING ABNORMAL [None]
  - FALL [None]
  - CONVULSION [None]
